FAERS Safety Report 4506094-7 (Version None)
Quarter: 2004Q4

REPORT INFORMATION
  Report Type: 
  Country: None (occurrence: None)
  Receive Date: 20041025
  Receipt Date: 20040506
  Transmission Date: 20050328
  Serious: Yes (Hospitalization)
  Sender: FDA-Public Use
  Company Number: US-JNJFOC-20040501327

PATIENT
  Age: 72 Year
  Sex: Female
  Weight: 52.1637 kg

DRUGS (8)
  1. REMICADE [Suspect]
     Indication: RHEUMATOID ARTHRITIS
     Dosage: 200 MG, INTRAVENOUS
     Route: 042
     Dates: start: 20040310
  2. WATER PILLS (DIURETICS) [Concomitant]
  3. METHOTREXATE [Concomitant]
  4. BENADRYL (DIPHENHYDRAMINE HYDROCLORIDE) [Concomitant]
  5. ALL OTHER THERAPEUTIC PRODUCTS (ALL OTHER THERAPEUTIC PRODUCTS) [Concomitant]
  6. MEDROL [Concomitant]
  7. HYDROCODONE (HYDROCODONE) [Concomitant]
  8. FORTEO [Concomitant]

REACTIONS (6)
  - ASTHENIA [None]
  - CELLULITIS [None]
  - FATIGUE [None]
  - IRRITABILITY [None]
  - LETHARGY [None]
  - NERVOUSNESS [None]
